FAERS Safety Report 7049748-3 (Version None)
Quarter: 2010Q4

REPORT INFORMATION
  Report Type: 
  Country: None (occurrence: None)
  Receive Date: 20101018
  Receipt Date: 20101006
  Transmission Date: 20110411
  Serious: Yes (Other)
  Sender: FDA-Public Use
  Company Number: B0679556A

PATIENT
  Age: 54 Year
  Sex: Female

DRUGS (1)
  1. VENTOLIN [Suspect]
     Indication: PRODUCT USED FOR UNKNOWN INDICATION
     Route: 065

REACTIONS (2)
  - HYPERTENSION [None]
  - HYPOTHYROIDISM [None]
